FAERS Safety Report 13891697 (Version 2)
Quarter: 2017Q3

REPORT INFORMATION
  Report Type: Report from Study
  Country: US (occurrence: US)
  Receive Date: 20170822
  Receipt Date: 20170911
  Transmission Date: 20171127
  Serious: Yes (Hospitalization)
  Sender: FDA-Public Use
  Company Number: US-B.I. PHARMACEUTICALS,INC./RIDGEFIELD-2017-BI-045389

PATIENT
  Age: 77 Year
  Sex: Male

DRUGS (10)
  1. RANITIDINE [Concomitant]
     Indication: GASTRIC DISORDER
     Dosage: ONE TABLET DAILY;  FORM STRENGTH: 150 MG; FORMULATION: TABLET
     Route: 048
  2. SAW PALMETTO [Concomitant]
     Active Substance: HERBALS\SAW PALMETTO
     Indication: PRODUCT USED FOR UNKNOWN INDICATION
     Dosage: TWO TABLET TWICE A DAY;  FORM STRENGTH: 450 MG; FORMULATION: TABLET
     Route: 048
  3. SIMVASTATIN [Concomitant]
     Indication: BLOOD CHOLESTEROL INCREASED
     Dosage: ONE TABLET DAILY;  FORM STRENGTH: 20 MG; FORMULATION: TABLET
     Route: 048
  4. ALLOPURINOL [Concomitant]
     Indication: GOUT
     Dosage: ONCE TABLET DAILY;  FORM STRENGTH: 300 MG; FORMULATION: TABLET
     Route: 048
  5. MAGNESIUM [Concomitant]
     Active Substance: MAGNESIUM
     Indication: BLOOD MAGNESIUM DECREASED
     Dosage: TWO TABLETS TWICE A DAY;  FORM STRENGTH: 250 MG; FORMULATION: TABLET
     Route: 048
  6. FISH OIL [Concomitant]
     Active Substance: FISH OIL
     Indication: PRODUCT USED FOR UNKNOWN INDICATION
     Dosage: TWO CAPSULE ONCE IN MORNING;  FORM STRENGTH: 1200 MG; FORMULATION: CAPSULE
     Route: 048
  7. OFEV [Suspect]
     Active Substance: NINTEDANIB
     Indication: IDIOPATHIC PULMONARY FIBROSIS
     Route: 048
     Dates: start: 201707
  8. PIO/MET [Concomitant]
     Indication: DIABETES MELLITUS
     Dosage: ONE TABLET TWICE A DAY;  FORM STRENGTH: 15/850 MG; FORMULATION: TABLET
     Route: 048
  9. OFEV [Suspect]
     Active Substance: NINTEDANIB
     Route: 048
     Dates: start: 20170807
  10. ASPIRIN [Concomitant]
     Indication: PRODUCT USED FOR UNKNOWN INDICATION
     Dosage: TWO TABLETS DAILY;  FORM STRENGTH: 81 MG; FORMULATION: TABLET
     Route: 048

REACTIONS (3)
  - Gastric ulcer [Unknown]
  - Pain [Not Recovered/Not Resolved]
  - Haematemesis [Unknown]

NARRATIVE: CASE EVENT DATE: 201707
